FAERS Safety Report 15500158 (Version 1)
Quarter: 2018Q4

REPORT INFORMATION
  Report Type: Spontaneous
  Country: US (occurrence: US)
  Receive Date: 20181015
  Receipt Date: 20181015
  Transmission Date: 20190205
  Serious: Yes (Death, Other)
  Sender: FDA-Public Use
  Company Number: US-IMPAX LABORATORIES, INC-2018-IPXL-03370

PATIENT
  Age: 79 Year
  Sex: Male

DRUGS (8)
  1. IMODIUM [Suspect]
     Active Substance: LOPERAMIDE HYDROCHLORIDE
     Indication: METASTASES TO LIVER
  2. OCTREOTIDE. [Suspect]
     Active Substance: OCTREOTIDE
     Indication: METASTASES TO LIVER
  3. DIPHENOXYLATE/ATROPINE [Suspect]
     Active Substance: ATROPINE\DIPHENOXYLATE
     Indication: CARCINOID TUMOUR OF THE STOMACH
     Dosage: UNK
     Route: 065
  4. DIPHENOXYLATE/ATROPINE [Suspect]
     Active Substance: ATROPINE\DIPHENOXYLATE
     Indication: METASTASES TO LIVER
  5. OCTREOTIDE. [Suspect]
     Active Substance: OCTREOTIDE
     Indication: CARCINOID TUMOUR OF THE STOMACH
     Dosage: UNK
     Route: 065
  6. CYPROHEPTADINE HYDROCHLORIDE. [Suspect]
     Active Substance: CYPROHEPTADINE HYDROCHLORIDE
     Indication: METASTASES TO LIVER
  7. CYPROHEPTADINE HYDROCHLORIDE. [Suspect]
     Active Substance: CYPROHEPTADINE HYDROCHLORIDE
     Indication: CARCINOID TUMOUR OF THE STOMACH
     Dosage: UNK
     Route: 065
  8. IMODIUM [Suspect]
     Active Substance: LOPERAMIDE HYDROCHLORIDE
     Indication: CARCINOID TUMOUR OF THE STOMACH
     Dosage: UNK
     Route: 065

REACTIONS (3)
  - Pneumonia [Fatal]
  - Asthenia [Unknown]
  - Chylothorax [Recovered/Resolved]
